FAERS Safety Report 15044060 (Version 1)
Quarter: 2018Q2

REPORT INFORMATION
  Report Type: Spontaneous
  Country: US (occurrence: US)
  Receive Date: 20180531
  Receipt Date: 20180531
  Transmission Date: 20180711
  Serious: No
  Sender: FDA-Public Use
  Company Number: None

PATIENT
  Age: 58 Year
  Sex: Female
  Weight: 83.46 kg

DRUGS (4)
  1. LEUCOVORIN 5MG [Suspect]
     Active Substance: LEUCOVORIN
     Indication: OSTEOARTHRITIS
     Route: 048
     Dates: start: 201301
  2. DICLOFENAC [Concomitant]
     Active Substance: DICLOFENAC
  3. LEUCOVORIN 5MG [Suspect]
     Active Substance: LEUCOVORIN
     Indication: RHEUMATOID ARTHRITIS
     Route: 048
     Dates: start: 201301
  4. OTREXUP [Suspect]
     Active Substance: METHOTREXATE
     Route: 058
     Dates: start: 201412

REACTIONS (1)
  - Sinusitis [None]
